FAERS Safety Report 4908388-X (Version None)
Quarter: 2006Q1

REPORT INFORMATION
  Report Type: 
  Country: None (occurrence: None)
  Receive Date: 20060210
  Receipt Date: 20050514
  Transmission Date: 20060701
  Serious: Yes (Death, Hospitalization)
  Sender: FDA-Public Use
  Company Number: PHHO2005DE07775

PATIENT
  Age: 45 Year
  Sex: Male

DRUGS (13)
  1. ZOLEDRONIC ACID [Suspect]
     Indication: OSTEOPOROSIS
     Dosage: 4 MG, Q3MO
     Route: 042
     Dates: start: 20030819, end: 20050418
  2. CALCIUM GLUCONATE [Concomitant]
     Indication: OSTEOPOROSIS
     Dosage: 500 MG, UNK
  3. VITAMIN D3 [Concomitant]
     Indication: OSTEOPOROSIS
     Dosage: 400 IU, UNK
  4. ACYCLOVIR [Concomitant]
     Dates: start: 20020101
  5. PENICILLIN VK [Concomitant]
     Dates: start: 20040401
  6. URSO FALK [Concomitant]
     Dates: start: 20040401
  7. PANTOZOL [Concomitant]
     Dates: start: 20040401
  8. PREDNISOLONE [Concomitant]
     Indication: GRAFT VERSUS HOST DISEASE
     Dosage: UNK, UNK
     Dates: start: 20030323
  9. MYCOPHENOLATE MOFETIL [Concomitant]
     Dosage: UNK, UNK
     Dates: start: 20030711
  10. VORICONAZOLE [Concomitant]
     Dates: start: 20050406
  11. CORTICOSTEROIDS [Concomitant]
     Indication: GRAFT VERSUS HOST DISEASE
     Dates: start: 20050323
  12. PLASMAPHERESIS [Concomitant]
     Dates: start: 20050101, end: 20050209
  13. AMPHOTERICIN B [Concomitant]

REACTIONS (4)
  - BONE EROSION [None]
  - IMPAIRED HEALING [None]
  - SINUSITIS [None]
  - TOOTH EXTRACTION [None]
